FAERS Safety Report 24006808 (Version 2)
Quarter: 2024Q3

REPORT INFORMATION
  Report Type: Spontaneous
  Country: US (occurrence: US)
  Receive Date: 20240624
  Receipt Date: 20240823
  Transmission Date: 20241017
  Serious: No
  Sender: SANDOZ
  Company Number: US-SANDOZ-SDZ2024US059925

PATIENT
  Sex: Female

DRUGS (1)
  1. ALPRAZOLAM [Suspect]
     Active Substance: ALPRAZOLAM
     Indication: Social anxiety disorder
     Dosage: UNK, QID
     Route: 065

REACTIONS (4)
  - Drug ineffective [Unknown]
  - Counterfeit product administered [Unknown]
  - Product physical issue [Unknown]
  - Product label issue [Unknown]
